FAERS Safety Report 10140166 (Version 2)
Quarter: 2015Q1

REPORT INFORMATION
  Report Type: Other
  Country: US (occurrence: US)
  Receive Date: 20140429
  Receipt Date: 20150210
  Transmission Date: 20150720
  Serious: Yes (Death, Hospitalization, Other)
  Sender: FDA-Public Use
  Company Number: US-GSKPPD-2014GSK038836

PATIENT
  Age: 72 Year
  Sex: Female

DRUGS (3)
  1. LASIX [Concomitant]
     Active Substance: FUROSEMIDE
  2. AVANDIA [Suspect]
     Active Substance: ROSIGLITAZONE MALEATE
     Indication: DIABETES MELLITUS
     Dosage: DATES OF AVANDIA USE COULD NOT BE CONFIRMED IN RECORDS REVIEWED.
     Route: 048
  3. NORVASC [Concomitant]
     Active Substance: AMLODIPINE BESYLATE

REACTIONS (4)
  - Coronary artery disease [Unknown]
  - Cardiac failure congestive [Recovered/Resolved]
  - Cardiomyopathy [Fatal]
  - Myocardial infarction [Unknown]

NARRATIVE: CASE EVENT DATE: 20000930
